FAERS Safety Report 7661123-7 (Version None)
Quarter: 2011Q3

REPORT INFORMATION
  Report Type: 
  Country: None (occurrence: None)
  Receive Date: 20110805
  Receipt Date: 20100923
  Transmission Date: 20111222
  Serious: No
  Sender: FDA-Public Use
  Company Number: US-ABBOTT-10P-163-0672862-00

PATIENT
  Sex: Male

DRUGS (1)
  1. NIASPAN [Suspect]
     Indication: PRODUCT USED FOR UNKNOWN INDICATION
     Dosage: AN HOUR BEFORE BEDTIME
     Route: 048
     Dates: start: 20100921

REACTIONS (3)
  - SKIN BURNING SENSATION [None]
  - PRURITUS [None]
  - FLUSHING [None]
